FAERS Safety Report 10779011 (Version 1)
Quarter: 2015Q1

REPORT INFORMATION
  Report Type: Spontaneous
  Country: US (occurrence: None)
  Receive Date: 20150205
  Receipt Date: 20150205
  Transmission Date: 20150721
  Serious: Yes (Life-Threatening, Hospitalization)
  Sender: FDA-Public Use
  Company Number: None

PATIENT
  Age: 65 Year
  Sex: Female
  Weight: 131.54 kg

DRUGS (4)
  1. GABAPENTIN. [Concomitant]
     Active Substance: GABAPENTIN
  2. FLUCONAZOLE. [Suspect]
     Active Substance: FLUCONAZOLE
     Indication: VULVOVAGINAL MYCOTIC INFECTION
     Dosage: TAKE ONE TABLET ON DAY 1, DAY 3, DAY 5
     Route: 048
     Dates: start: 20131209, end: 20131213
  3. LEVOTHYROXINE [Concomitant]
     Active Substance: LEVOTHYROXINE
  4. ADVIL [Concomitant]
     Active Substance: IBUPROFEN

REACTIONS (7)
  - Swelling face [None]
  - Urticaria [None]
  - Pruritus [None]
  - Swollen tongue [None]
  - Lip swelling [None]
  - Dyspnoea [None]
  - Generalised erythema [None]

NARRATIVE: CASE EVENT DATE: 20131213
